FAERS Safety Report 16014369 (Version 2)
Quarter: 2019Q2

REPORT INFORMATION
  Report Type: Spontaneous
  Country: TR (occurrence: TR)
  Receive Date: 20190227
  Receipt Date: 20190525
  Transmission Date: 20190711
  Serious: Yes (Hospitalization, Other)
  Sender: FDA-Public Use
  Company Number: PHHY2019TR043381

PATIENT
  Age: 9 Year
  Sex: Male

DRUGS (4)
  1. URIKOLIZ [Suspect]
     Active Substance: ALLOPURINOL
     Indication: ACID BASE BALANCE
     Dosage: 0.5 DF, BID (MORNING ? DOSE AND EVENING ? DOSE)
     Route: 065
  2. ROCALTROL [Concomitant]
     Active Substance: CALCITRIOL
     Indication: PRODUCT USED FOR UNKNOWN INDICATION
     Dosage: UNK
     Route: 065
  3. ARANESP [Concomitant]
     Active Substance: DARBEPOETIN ALFA
     Indication: PRODUCT USED FOR UNKNOWN INDICATION
     Dosage: UNK UNK, QW
     Route: 065
  4. URIKOLIZ [Suspect]
     Active Substance: ALLOPURINOL
     Indication: CHRONIC KIDNEY DISEASE

REACTIONS (8)
  - Swelling [Unknown]
  - Toxicity to various agents [Unknown]
  - Rash [Unknown]
  - Rash macular [Unknown]
  - Erythema [Unknown]
  - Pyrexia [Unknown]
  - Renal impairment [Unknown]
  - Hypersensitivity [Recovering/Resolving]

NARRATIVE: CASE EVENT DATE: 20190212
